FAERS Safety Report 9775613 (Version 1)
Quarter: 2013Q4

REPORT INFORMATION
  Report Type: Spontaneous
  Country: EG (occurrence: EG)
  Receive Date: 20131220
  Receipt Date: 20131220
  Transmission Date: 20140711
  Serious: Yes (Death, Other)
  Sender: FDA-Public Use
  Company Number: PHHY2013EG146542

PATIENT
  Age: 10 Month
  Sex: Female

DRUGS (6)
  1. VALPROATE SODIUM [Suspect]
     Indication: EPILEPSY
  2. VALPROATE SODIUM [Suspect]
     Indication: DIABETES MELLITUS
  3. CLONAZEPAM [Suspect]
     Indication: EPILEPSY
  4. CLONAZEPAM [Suspect]
     Indication: DIABETES MELLITUS
  5. VIGABATRIN [Suspect]
     Indication: EPILEPSY
  6. VIGABATRIN [Suspect]
     Indication: DIABETES MELLITUS

REACTIONS (4)
  - Pneumonia [Fatal]
  - Diabetes mellitus [Unknown]
  - Epilepsy [Unknown]
  - Drug ineffective [Unknown]
